FAERS Safety Report 9893056 (Version 2)
Quarter: 2014Q1

REPORT INFORMATION
  Report Type: Spontaneous
  Country: LY (occurrence: LY)
  Receive Date: 20140213
  Receipt Date: 20140226
  Transmission Date: 20141002
  Serious: Yes (Death)
  Sender: FDA-Public Use
  Company Number: LY-ROCHE-1343596

PATIENT
  Age: 41 Year
  Sex: Male

DRUGS (6)
  1. RITUXIMAB [Suspect]
     Indication: NON-HODGKIN^S LYMPHOMA
     Route: 042
  2. RITUXIMAB [Suspect]
     Dosage: HIGH DOSE.
     Route: 042
  3. FLUDARABINE [Concomitant]
     Indication: CHRONIC LYMPHOCYTIC LEUKAEMIA REFRACTORY
  4. CYCLOPHOSPHAMIDE [Concomitant]
     Indication: CHRONIC LYMPHOCYTIC LEUKAEMIA REFRACTORY
  5. VINCRISTINE [Concomitant]
     Indication: CHRONIC LYMPHOCYTIC LEUKAEMIA REFRACTORY
  6. PREDNISOLONE [Concomitant]
     Indication: CHRONIC LYMPHOCYTIC LEUKAEMIA REFRACTORY

REACTIONS (3)
  - Respiratory distress [Fatal]
  - Chills [Unknown]
  - Hypotension [Unknown]
